FAERS Safety Report 18088939 (Version 1)
Quarter: 2020Q3

REPORT INFORMATION
  Report Type: Report from Study
  Country: None (occurrence: CH)
  Receive Date: 20200730
  Receipt Date: 20200730
  Transmission Date: 20201103
  Serious: Yes (Hospitalization)
  Sender: FDA-Public Use
  Company Number: CH-ABBVIE-20K-151-3258408-00

PATIENT
  Age: 68 Year
  Sex: Male

DRUGS (3)
  1. DUODOPA [Suspect]
     Active Substance: CARBIDOPA\LEVODOPA
     Indication: PARKINSON^S DISEASE
     Route: 050
     Dates: start: 20170703, end: 20180601
  2. DUODOPA [Suspect]
     Active Substance: CARBIDOPA\LEVODOPA
     Dosage: M.D: 10 ML, C.D RATE DAY: 3.6 ML/H, C.D RATE NIGHT: 0 ML/H, E.D: 1.8 ML, 16 H THERAPY
     Route: 050
     Dates: start: 20180601, end: 20191210
  3. DUODOPA [Suspect]
     Active Substance: CARBIDOPA\LEVODOPA
     Dosage: M.D: 10 ML, C.D RATE DAY: 3.7 ML/H, C.D RATE NIGHT: 0 ML/H, E.D : 1.8 ML, 16 H THERAPY
     Route: 050
     Dates: start: 20191210

REACTIONS (6)
  - Device kink [Recovered/Resolved]
  - Medical device site pain [Recovered/Resolved]
  - Device connection issue [Unknown]
  - Freezing phenomenon [Unknown]
  - Dyskinesia [Unknown]
  - Hyperkinesia [Unknown]

NARRATIVE: CASE EVENT DATE: 202001
